FAERS Safety Report 17510163 (Version 2)
Quarter: 2020Q1

REPORT INFORMATION
  Report Type: Spontaneous
  Country: US (occurrence: US)
  Receive Date: 20200306
  Receipt Date: 20200331
  Transmission Date: 20200409
  Serious: No
  Sender: FDA-Public Use
  Company Number: US-PFIZER INC-2020100228

PATIENT
  Age: 58 Year
  Sex: Male
  Weight: 80.74 kg

DRUGS (4)
  1. REVATIO [Suspect]
     Active Substance: SILDENAFIL CITRATE
     Indication: PAIN
     Dosage: 60 MG, AS NEEDED (3 PILLS PER DAY AS NEEDED FOR PAIN,20MG)
     Dates: start: 201902
  2. AMBIEN [Concomitant]
     Active Substance: ZOLPIDEM TARTRATE
     Indication: SLEEP DISORDER THERAPY
     Dosage: 0.5 MG, UNK
  3. XANAX [Concomitant]
     Active Substance: ALPRAZOLAM
     Indication: POST-TRAUMATIC STRESS DISORDER
  4. XANAX [Concomitant]
     Active Substance: ALPRAZOLAM
     Indication: ANXIETY
     Dosage: 25 MG, 3X/DAY(25MG UP TO 3 THREE TIMES A DAY, HE THINKS)

REACTIONS (3)
  - Off label use [Unknown]
  - Visual impairment [Unknown]
  - Product use in unapproved indication [Unknown]
